FAERS Safety Report 15431634 (Version 1)
Quarter: 2018Q3

REPORT INFORMATION
  Report Type: Spontaneous
  Country: CZ (occurrence: CZ)
  Receive Date: 20180926
  Receipt Date: 20180926
  Transmission Date: 20181010
  Serious: Yes (Other)
  Sender: FDA-Public Use
  Company Number: CZ-MYLANLABS-2018M1069853

PATIENT
  Age: 72 Year
  Sex: Male

DRUGS (3)
  1. MESALAZINE [Suspect]
     Active Substance: MESALAMINE
     Indication: PRODUCT USED FOR UNKNOWN INDICATION
     Dosage: 1 G, QD
  2. MESALAZINE [Suspect]
     Active Substance: MESALAMINE
     Dosage: 2 G, QD
  3. MESALAZINE [Suspect]
     Active Substance: MESALAMINE
     Indication: PRODUCT USED FOR UNKNOWN INDICATION
     Dosage: 3 G, QD

REACTIONS (1)
  - Drug ineffective [Not Recovered/Not Resolved]
